FAERS Safety Report 10204393 (Version 3)
Quarter: 2014Q2

REPORT INFORMATION
  Report Type: Report from Study
  Country: US (occurrence: US)
  Receive Date: 20140529
  Receipt Date: 20140620
  Transmission Date: 20141212
  Serious: Yes (Hospitalization)
  Sender: FDA-Public Use
  Company Number: US-PFIZER INC-2014115426

PATIENT
  Age: 62 Year
  Sex: Male
  Weight: 113.6 kg

DRUGS (4)
  1. PLACEBO [Suspect]
     Indication: SMOKING CESSATION THERAPY
     Dosage: 0 MG
     Route: 048
     Dates: start: 20140205, end: 20140416
  2. PLACEBO [Suspect]
     Dosage: 0 MG
     Route: 062
     Dates: start: 20140212, end: 20140416
  3. GUAIFENESIN [Suspect]
     Indication: SOMNOLENCE
     Dosage: 12.5 MG, 12TIMES DAY
     Route: 048
     Dates: start: 20140415, end: 20140416
  4. EPHEDRINE [Suspect]
     Indication: SOMNOLENCE
     Dosage: 200 MG, 12 TIMES DAY
     Route: 048
     Dates: start: 20140415, end: 20140416

REACTIONS (1)
  - Syncope [Recovered/Resolved]
